FAERS Safety Report 5119840-9 (Version None)
Quarter: 2006Q3

REPORT INFORMATION
  Report Type: 
  Country: None (occurrence: None)
  Receive Date: 20060929
  Receipt Date: 20060918
  Transmission Date: 20061208
  Serious: Yes (Hospitalization)
  Sender: FDA-Public Use
  Company Number: US018211

PATIENT
  Age: 9 Year
  Sex: Female
  Weight: 23.1334 kg

DRUGS (9)
  1. PROVIGIL [Suspect]
     Indication: NARCOLEPSY
     Dosage: 50 MG QD ORAL
     Route: 048
     Dates: start: 20060726, end: 20060803
  2. PROVIGIL [Suspect]
     Indication: NARCOLEPSY
     Dosage: 100 MG QD ORAL
     Route: 048
     Dates: start: 20060804, end: 20060818
  3. PROVIGIL [Suspect]
     Indication: NARCOLEPSY
     Dosage: 50 MG QD ORAL
     Route: 048
     Dates: start: 20060918
  4. ZYRTEC [Concomitant]
  5. SUDAFED 12 HOUR [Concomitant]
  6. ALBUTEROL [Concomitant]
  7. PULMICORT [Concomitant]
  8. SINGULAIR [Concomitant]
  9. EPIPEN [Concomitant]

REACTIONS (15)
  - ABASIA [None]
  - APHASIA [None]
  - BLISTER [None]
  - CONFUSIONAL STATE [None]
  - CONVULSION [None]
  - CRYING [None]
  - CULTURE THROAT POSITIVE [None]
  - DISORIENTATION [None]
  - DYSARTHRIA [None]
  - HALLUCINATION, VISUAL [None]
  - INCORRECT DOSE ADMINISTERED [None]
  - SCARLET FEVER [None]
  - SOMNOLENCE [None]
  - STREPTOCOCCAL INFECTION [None]
  - THERAPY NON-RESPONDER [None]
